FAERS Safety Report 8383509-8 (Version None)
Quarter: 2012Q2

REPORT INFORMATION
  Report Type: 
  Country: None (occurrence: None)
  Receive Date: 20120524
  Receipt Date: 20120515
  Transmission Date: 20120825
  Serious: Yes (Hospitalization)
  Sender: FDA-Public Use
  Company Number: US-MILLENNIUM PHARMACEUTICALS, INC.-2011-04293

PATIENT
  Sex: Male
  Weight: 93.424 kg

DRUGS (1)
  1. VELCADE [Suspect]
     Indication: MULTIPLE MYELOMA
     Dosage: 2.95 MG, CYCLIC
     Route: 042
     Dates: start: 20110207, end: 20110303

REACTIONS (1)
  - PSEUDOMEMBRANOUS COLITIS [None]
